FAERS Safety Report 4873486-6 (Version None)
Quarter: 2005Q4

REPORT INFORMATION
  Report Type: 
  Country: None (occurrence: None)
  Receive Date: 20051201
  Receipt Date: 20050822
  Transmission Date: 20060501
  Serious: No
  Sender: FDA-Public Use
  Company Number: 2005PV001402

PATIENT
  Age: 64 Year
  Sex: Female
  Weight: 90.7194 kg

DRUGS (6)
  1. BYETTA [Suspect]
     Indication: DIABETES MELLITUS NON-INSULIN-DEPENDENT
     Dosage: 5 MCG; BID; SC
     Route: 058
     Dates: start: 20050709, end: 20050728
  2. LANTUS [Concomitant]
  3. ACTOS [Concomitant]
  4. ACCUPRIL [Concomitant]
  5. OGEN [Concomitant]
  6. VITAMINS [Concomitant]

REACTIONS (5)
  - BLOOD GLUCOSE DECREASED [None]
  - DYSPEPSIA [None]
  - FATIGUE [None]
  - MALAISE [None]
  - NAUSEA [None]
